FAERS Safety Report 5374548-X (Version None)
Quarter: 2007Q2

REPORT INFORMATION
  Report Type: 
  Country: None (occurrence: None)
  Receive Date: 20070629
  Receipt Date: 20070620
  Transmission Date: 20071010
  Serious: Yes (Other)
  Sender: FDA-Public Use
  Company Number: US-AMGEN-US230326

PATIENT
  Sex: Male
  Weight: 93.1 kg

DRUGS (4)
  1. EPOGEN [Suspect]
     Indication: DIALYSIS
     Dates: start: 20060605
  2. QUINAPRIL [Concomitant]
  3. VITAMIN CAP [Concomitant]
  4. ASCORBIC ACID [Concomitant]

REACTIONS (2)
  - HYPOGAMMAGLOBULINAEMIA [None]
  - PANCYTOPENIA [None]
